FAERS Safety Report 18122977 (Version 2)
Quarter: 2020Q3

REPORT INFORMATION
  Report Type: Spontaneous
  Country: US (occurrence: US)
  Receive Date: 20200807
  Receipt Date: 20200818
  Transmission Date: 20201103
  Serious: Yes (Other)
  Sender: FDA-Public Use
  Company Number: US-DRREDDYS-USA/USA/20/0125735

PATIENT
  Age: 60 Year
  Sex: Female

DRUGS (2)
  1. FONDAPARINUX SODIUM. [Suspect]
     Active Substance: FONDAPARINUX SODIUM
     Indication: THROMBOCYTOSIS
  2. FONDAPARINUX SODIUM. [Suspect]
     Active Substance: FONDAPARINUX SODIUM
     Indication: THROMBOSIS

REACTIONS (2)
  - Haemorrhage [Unknown]
  - Haematoma [Unknown]
